FAERS Safety Report 7472699-7 (Version None)
Quarter: 2011Q2

REPORT INFORMATION
  Report Type: 
  Country: None (occurrence: None)
  Receive Date: 20110502
  Receipt Date: 20110418
  Transmission Date: 20111010
  Serious: Yes (Other)
  Sender: FDA-Public Use
  Company Number: 2011SP017751

PATIENT
  Age: 35 Year
  Sex: Female

DRUGS (2)
  1. TOPAMAX [Suspect]
     Indication: MIGRAINE
  2. NUVARING [Suspect]
     Indication: CONTRACEPTION

REACTIONS (5)
  - DRUG EFFECT DECREASED [None]
  - DRUG EXPOSURE DURING PREGNANCY [None]
  - ABORTION SPONTANEOUS [None]
  - MIGRAINE [None]
  - PREGNANCY WITH CONTRACEPTIVE DEVICE [None]
